FAERS Safety Report 5840888-0 (Version None)
Quarter: 2008Q3

REPORT INFORMATION
  Report Type: 
  Country: None (occurrence: None)
  Receive Date: 20080811
  Receipt Date: 20080730
  Transmission Date: 20090109
  Serious: Yes (Other)
  Sender: FDA-Public Use
  Company Number: US-PFIZER INC-2008064023

PATIENT
  Sex: Male
  Weight: 90 kg

DRUGS (1)
  1. VIAGRA [Suspect]
     Indication: ERECTILE DYSFUNCTION

REACTIONS (4)
  - ARTERIAL OCCLUSIVE DISEASE [None]
  - HALLUCINATION, VISUAL [None]
  - OPTIC ISCHAEMIC NEUROPATHY [None]
  - VISUAL IMPAIRMENT [None]
